FAERS Safety Report 9387915 (Version 1)
Quarter: 2013Q3

REPORT INFORMATION
  Report Type: Spontaneous
  Country: US (occurrence: None)
  Receive Date: 20130701
  Receipt Date: 20130701
  Transmission Date: 20140515
  Serious: Yes (Life-Threatening, Hospitalization, Other)
  Sender: FDA-Public Use
  Company Number: USA/USA/13/0030227

PATIENT
  Age: 69 Year
  Sex: Female

DRUGS (2)
  1. AMLODIPINE BESYLATE [Suspect]
     Indication: PRODUCT USED FOR UNKNOWN INDICATION
     Route: 048
  2. ATENOLOL [Suspect]
     Indication: PRODUCT USED FOR UNKNOWN INDICATION
     Route: 048

REACTIONS (10)
  - Shock [None]
  - Somnolence [None]
  - Vomiting [None]
  - Bradycardia [None]
  - Hypotension [None]
  - Hypokalaemia [None]
  - Ventricular fibrillation [None]
  - Unresponsive to stimuli [None]
  - Suicide attempt [None]
  - Overdose [None]
